FAERS Safety Report 4917054-6 (Version None)
Quarter: 2006Q1

REPORT INFORMATION
  Report Type: 
  Country: None (occurrence: None)
  Receive Date: 20060221
  Receipt Date: 20060213
  Transmission Date: 20060701
  Serious: Yes (Other)
  Sender: FDA-Public Use
  Company Number: PHBS2006NL02293

PATIENT
  Sex: Female

DRUGS (1)
  1. EXELON [Suspect]
     Dosage: 4 MG/DAY
     Route: 048

REACTIONS (3)
  - CROHN'S DISEASE [None]
  - GASTROINTESTINAL DISORDER [None]
  - NAUSEA [None]
